FAERS Safety Report 5719743-2 (Version None)
Quarter: 2008Q2

REPORT INFORMATION
  Report Type: 
  Country: None (occurrence: None)
  Receive Date: 20080428
  Receipt Date: 20080422
  Transmission Date: 20081010
  Serious: Yes (Disabling, Other)
  Sender: FDA-Public Use
  Company Number: PHRM2008FR01353

PATIENT
  Age: 60 Year
  Sex: Female

DRUGS (5)
  1. ZOMETA [Suspect]
     Indication: METASTASES TO BONE
     Route: 042
     Dates: start: 20070201
  2. AREDIA [Suspect]
     Indication: METASTASES TO BONE
     Route: 042
     Dates: start: 20070101, end: 20071001
  3. TAXOTERE [Concomitant]
     Indication: BREAST CANCER METASTATIC
  4. AVASTIN [Concomitant]
     Indication: BREAST CANCER METASTATIC
  5. CARBOPLATIN [Concomitant]
     Indication: BREAST CANCER METASTATIC

REACTIONS (1)
  - OSTEONECROSIS [None]
